FAERS Safety Report 9181151 (Version 1)
Quarter: 2013Q1

REPORT INFORMATION
  Report Type: Spontaneous
  Country: US (occurrence: US)
  Receive Date: 20130322
  Receipt Date: 20130322
  Transmission Date: 20140127
  Serious: No
  Sender: FDA-Public Use
  Company Number: US-MYLANLABS-2012S1009547

PATIENT
  Age: 61 Year
  Sex: Female
  Weight: 81.19 kg

DRUGS (18)
  1. EMSAM [Suspect]
     Indication: DEPRESSION
     Dosage: CHANGED Q24H
     Route: 062
     Dates: start: 2012, end: 20120430
  2. CARVEDILOL [Concomitant]
     Route: 048
  3. LOSARTIN [Concomitant]
     Route: 048
  4. DILTIAZEM [Concomitant]
     Route: 048
  5. FLORINEF [Concomitant]
     Route: 048
  6. SPIRONOLACTONE [Concomitant]
     Route: 048
  7. LIOTHYRONINE [Concomitant]
     Indication: THYROID DISORDER
     Route: 048
  8. XANAX [Concomitant]
     Route: 048
  9. NEXIUM [Concomitant]
     Indication: GASTROOESOPHAGEAL REFLUX DISEASE
     Route: 048
  10. SUCRALFATE [Concomitant]
     Indication: GASTROOESOPHAGEAL REFLUX DISEASE
     Route: 048
  11. SIMVASTATIN [Concomitant]
     Indication: BLOOD CHOLESTEROL
     Route: 048
  12. FOSAMAX [Concomitant]
     Route: 048
  13. AMBIEN CR [Concomitant]
     Indication: INSOMNIA
     Route: 048
  14. TAMOXIFEN [Concomitant]
     Indication: HORMONE THERAPY
     Route: 048
  15. FISH OIL [Concomitant]
     Route: 048
  16. CALCIUM [Concomitant]
     Route: 048
  17. ASA [Concomitant]
     Route: 048
  18. VITAMIN B [Concomitant]
     Route: 048

REACTIONS (6)
  - Drug ineffective [Recovered/Resolved]
  - Depression [Not Recovered/Not Resolved]
  - Anger [Recovered/Resolved]
  - Application site erythema [Not Recovered/Not Resolved]
  - Application site pruritus [Recovered/Resolved]
  - Anxiety [Recovered/Resolved]
